FAERS Safety Report 15769960 (Version 1)
Quarter: 2018Q4

REPORT INFORMATION
  Report Type: Spontaneous
  Country: DE (occurrence: DE)
  Receive Date: 20181228
  Receipt Date: 20181228
  Transmission Date: 20190205
  Serious: Yes (Hospitalization, Other)
  Sender: FDA-Public Use
  Company Number: DE-APOTEX-2018AP027898

PATIENT
  Age: 73 Year
  Sex: Male

DRUGS (5)
  1. NOVALGIN                           /00169801/ [Concomitant]
     Active Substance: ACETAMINOPHEN\CAFFEINE\PROPYPHENAZONE
     Indication: PAIN
     Dosage: 2 G, PER DAY
     Route: 065
  2. RIFAMPICIN [Concomitant]
     Active Substance: RIFAMPIN
     Indication: ANTIBIOTIC THERAPY
     Route: 048
  3. FLUCLOXACILLIN [Concomitant]
     Active Substance: FLUCLOXACILLIN
     Indication: ANTIBIOTIC THERAPY
     Route: 042
  4. ACETAMINOPHEN. [Suspect]
     Active Substance: ACETAMINOPHEN
     Indication: PAIN
     Dosage: 2 G, PER DAY
     Route: 065
  5. BUPRENORPHINE. [Concomitant]
     Active Substance: BUPRENORPHINE
     Indication: PAIN
     Route: 065

REACTIONS (9)
  - Disorientation [Unknown]
  - Hypertensive crisis [Unknown]
  - Acidosis hyperchloraemic [Unknown]
  - Aggression [Unknown]
  - Disturbance in attention [Unknown]
  - Metabolic acidosis [Unknown]
  - Agitation [Unknown]
  - Tachycardia [Unknown]
  - Respiratory alkalosis [Unknown]
